FAERS Safety Report 25268594 (Version 1)
Quarter: 2025Q2

REPORT INFORMATION
  Report Type: Spontaneous
  Country: US (occurrence: None)
  Receive Date: 20250504
  Receipt Date: 20250504
  Transmission Date: 20250717
  Serious: Yes (Other)
  Sender: FDA-CTU
  Company Number: None

PATIENT
  Age: 8 Month
  Sex: Female
  Weight: 8.1 kg

DRUGS (1)
  1. AMOXICILLIN [Suspect]
     Active Substance: AMOXICILLIN
     Dates: start: 20250502, end: 20250502

REACTIONS (1)
  - Urticaria [None]

NARRATIVE: CASE EVENT DATE: 20250503
